FAERS Safety Report 17485584 (Version 3)
Quarter: 2020Q2

REPORT INFORMATION
  Report Type: Report from Study
  Country: US (occurrence: US)
  Receive Date: 20200302
  Receipt Date: 20200413
  Transmission Date: 20200713
  Serious: No
  Sender: FDA-Public Use
  Company Number: US-SA-2020SA053886

PATIENT
  Age: 48 Year
  Sex: Female

DRUGS (2)
  1. DUPILUMAB [Suspect]
     Active Substance: DUPILUMAB
     Indication: ASTHMA
     Dosage: 600 MG, 1X
     Route: 058
     Dates: start: 20200203, end: 20200203
  2. DUPILUMAB [Suspect]
     Active Substance: DUPILUMAB
     Dosage: 300 MG, QOW
     Route: 058

REACTIONS (4)
  - Injection site bruising [Unknown]
  - Dyspnoea [Recovered/Resolved]
  - Unevaluable event [Not Recovered/Not Resolved]
  - Injection site dryness [Recovering/Resolving]

NARRATIVE: CASE EVENT DATE: 20200326
